FAERS Safety Report 8826137 (Version 1)
Quarter: 2012Q4

REPORT INFORMATION
  Report Type: 
  Country: BR (occurrence: BR)
  Receive Date: 20121005
  Receipt Date: 20121005
  Transmission Date: 20130627
  Serious: Yes (Life-Threatening, Hospitalization)
  Sender: FDA-Public Use
  Company Number: PHHO2012BR003848

PATIENT
  Age: 65 Year
  Sex: Male
  Weight: 78.4 kg

DRUGS (2)
  1. TASIGNA [Suspect]
     Indication: CHRONIC MYELOID LEUKAEMIA
     Dosage: 400 mg, BID
     Route: 048
     Dates: start: 20070605, end: 20110915
  2. NIFEDIPINE [Concomitant]
     Indication: HYPERTENSION
     Dosage: 20 mg, QD
     Route: 048
     Dates: start: 20070710

REACTIONS (1)
  - Tachyarrhythmia [Unknown]
